FAERS Safety Report 11990052 (Version 1)
Quarter: 2016Q1

REPORT INFORMATION
  Report Type: Spontaneous
  Country: US (occurrence: US)
  Receive Date: 20160202
  Receipt Date: 20160202
  Transmission Date: 20160526
  Serious: No
  Sender: FDA-Public Use
  Company Number: US-ROCHE-1120251

PATIENT
  Sex: Male

DRUGS (1)
  1. NUTROPIN AQ [Suspect]
     Active Substance: SOMATROPIN
     Indication: DWARFISM
     Dosage: NUTROPIN AQ 10MG PEN
     Route: 065

REACTIONS (3)
  - Device issue [Unknown]
  - Pain [Unknown]
  - Haemorrhage [Unknown]
